FAERS Safety Report 18393822 (Version 1)
Quarter: 2020Q4

REPORT INFORMATION
  Report Type: Other
  Country: TR (occurrence: TR)
  Receive Date: 20201016
  Receipt Date: 20201016
  Transmission Date: 20210114
  Serious: Yes (Other)
  Sender: FDA-Public Use
  Company Number: TR-INVATECH-000025

PATIENT
  Age: 15 Year
  Sex: Male

DRUGS (4)
  1. RISPERIDONE. [Suspect]
     Active Substance: RISPERIDONE
     Indication: EPILEPSY
     Dosage: DAILY
  2. RISPERIDONE. [Suspect]
     Active Substance: RISPERIDONE
     Indication: AUTISM SPECTRUM DISORDER
     Dosage: DAILY
  3. VALPROIC ACID. [Suspect]
     Active Substance: VALPROIC ACID
     Indication: EPILEPSY
     Dosage: DAILY
  4. VALPROIC ACID. [Suspect]
     Active Substance: VALPROIC ACID
     Indication: AUTISM SPECTRUM DISORDER
     Dosage: DAILY

REACTIONS (7)
  - Megakaryocytes abnormal [Unknown]
  - Gingival hypertrophy [Unknown]
  - Anaemia megaloblastic [Recovered/Resolved]
  - Drug interaction [Unknown]
  - Dental caries [Unknown]
  - Pancytopenia [Recovered/Resolved]
  - Agitation [Recovered/Resolved]
